FAERS Safety Report 18756688 (Version 2)
Quarter: 2021Q1

REPORT INFORMATION
  Report Type: Spontaneous
  Country: CZ (occurrence: CZ)
  Receive Date: 20210119
  Receipt Date: 20210201
  Transmission Date: 20210419
  Serious: Yes (Other)
  Sender: FDA-Public Use
  Company Number: CZ-MYLANLABS-2021M1002025

PATIENT
  Age: 7 Decade
  Sex: Male

DRUGS (9)
  1. OXALIPLATIN. [Suspect]
     Active Substance: OXALIPLATIN
     Indication: COLORECTAL ADENOCARCINOMA
     Dosage: UNK UNK, CYCLE (8 CYCLICAL)
     Route: 065
     Dates: start: 201407, end: 201507
  2. FLUOROURACIL. [Suspect]
     Active Substance: FLUOROURACIL
     Indication: COLORECTAL ADENOCARCINOMA
     Dosage: UNK, CYCLE (8 CYCLICAL)
     Route: 065
     Dates: start: 201407, end: 201507
  3. OXALIPLATIN. [Suspect]
     Active Substance: OXALIPLATIN
     Indication: INTESTINAL ADENOCARCINOMA
  4. FLUOROURACIL. [Suspect]
     Active Substance: FLUOROURACIL
     Indication: INTESTINAL ADENOCARCINOMA
     Dosage: UNK(AFTER 6 CYCLES, DOSE REDUCED)
     Route: 065
  5. CALCIUM FOLINATE [Suspect]
     Active Substance: LEUCOVORIN CALCIUM
     Indication: COLORECTAL ADENOCARCINOMA
     Dosage: UNK
     Route: 065
  6. BEVACIZUMAB. [Suspect]
     Active Substance: BEVACIZUMAB
     Indication: COLORECTAL ADENOCARCINOMA
     Dosage: UNK(AFTER 6 CYCLES, DOSE REDUCED)
     Route: 065
  7. BEVACIZUMAB. [Suspect]
     Active Substance: BEVACIZUMAB
     Indication: INTESTINAL ADENOCARCINOMA
     Dosage: UNK, CYCLE (8 CYCLICAL)
     Route: 065
     Dates: start: 201407, end: 201507
  8. FOLINIC ACID [Suspect]
     Active Substance: LEUCOVORIN
     Indication: INTESTINAL ADENOCARCINOMA
     Dosage: UNK, CYCLE (8 CYCLICAL)
     Dates: start: 201407, end: 201507
  9. CALCIUM FOLINATE [Suspect]
     Active Substance: LEUCOVORIN CALCIUM
     Dosage: UNK(AFTER 6 CYCLES, DOSE REDUCED)
     Route: 065

REACTIONS (5)
  - Colorectal adenocarcinoma [Unknown]
  - Malignant neoplasm progression [Unknown]
  - Neurotoxicity [Unknown]
  - Hypersensitivity [Unknown]
  - Skin toxicity [Unknown]
